FAERS Safety Report 12487365 (Version 1)
Quarter: 2016Q2

REPORT INFORMATION
  Report Type: Spontaneous
  Country: US (occurrence: US)
  Receive Date: 20160622
  Receipt Date: 20160622
  Transmission Date: 20160815
  Serious: Yes (Hospitalization, Other)
  Sender: FDA-Public Use
  Company Number: US-ASTRAZENECA-2016SE65549

PATIENT
  Sex: Male

DRUGS (4)
  1. VALIUM [Concomitant]
     Active Substance: DIAZEPAM
  2. OXYCODONE [Concomitant]
     Active Substance: OXYCODONE
  3. QUETIAPINE FUMARATE. [Suspect]
     Active Substance: QUETIAPINE FUMARATE
     Indication: ANXIETY
     Dosage: 25.0MG UNKNOWN
     Route: 048
  4. BRILINTA [Suspect]
     Active Substance: TICAGRELOR
     Indication: ACUTE CORONARY SYNDROME
     Route: 048

REACTIONS (9)
  - Chronic obstructive pulmonary disease [Unknown]
  - Upper limb fracture [Unknown]
  - Posterior reversible encephalopathy syndrome [Unknown]
  - Pneumonia [Unknown]
  - Off label use [Unknown]
  - Seizure [Unknown]
  - Fall [Unknown]
  - Dyspnoea [Unknown]
  - Product use issue [Unknown]
